FAERS Safety Report 22324837 (Version 3)
Quarter: 2025Q4

REPORT INFORMATION
  Report Type: Spontaneous
  Country: US (occurrence: US)
  Receive Date: 20230516
  Receipt Date: 20251107
  Transmission Date: 20260117
  Serious: Yes (Other)
  Sender: PFIZER
  Company Number: US-PFIZER INC-PV202200047958

PATIENT
  Age: 65 Year
  Sex: Female
  Weight: 77.098 kg

DRUGS (2)
  1. XELJANZ XR [Suspect]
     Active Substance: TOFACITINIB CITRATE
     Indication: Rheumatoid arthritis
     Dosage: 11 MG, 1X/DAY
  2. EVENITY [Concomitant]
     Active Substance: ROMOSOZUMAB-AQQG
     Indication: Bone disorder
     Dosage: UNK, MONTHLY
     Dates: start: 20230104

REACTIONS (2)
  - Arthritis [Unknown]
  - Seasonal allergy [Recovered/Resolved]

NARRATIVE: CASE EVENT DATE: 20230301
